FAERS Safety Report 5141370-9 (Version None)
Quarter: 2006Q4

REPORT INFORMATION
  Report Type: 
  Country: None (occurrence: None)
  Receive Date: 20061101
  Receipt Date: 20060410
  Transmission Date: 20070319
  Serious: Yes (Hospitalization)
  Sender: FDA-Public Use
  Company Number: US-GLAXOSMITHKLINE-A0601742A

PATIENT
  Age: 24 Year
  Sex: Female
  Weight: 85.5 kg

DRUGS (6)
  1. WELLBUTRIN XL [Suspect]
     Indication: DEPRESSIVE SYMPTOM
     Dosage: 300MG UNKNOWN
     Route: 048
     Dates: start: 20040210, end: 20040320
  2. TETRACYCLINE [Suspect]
     Indication: DRUG USE FOR UNKNOWN INDICATION
     Route: 048
     Dates: start: 20040320, end: 20040320
  3. VITAMIN A [Suspect]
     Indication: DRUG USE FOR UNKNOWN INDICATION
     Route: 048
     Dates: start: 20040320, end: 20040320
  4. ALCOHOL [Suspect]
     Dosage: 6UNIT PER DAY
     Route: 048
     Dates: start: 20040320, end: 20040320
  5. DIFFERIN [Concomitant]
     Indication: ACNE
  6. VITAMIN A [Concomitant]

REACTIONS (16)
  - AGGRESSION [None]
  - AGITATION [None]
  - CONFUSIONAL STATE [None]
  - DEPRESSED MOOD [None]
  - DEPRESSION [None]
  - DISORIENTATION [None]
  - FATIGUE [None]
  - HALLUCINATION [None]
  - INTENTIONAL OVERDOSE [None]
  - MOOD SWINGS [None]
  - NAUSEA [None]
  - PERSONALITY DISORDER [None]
  - SINUS TACHYCARDIA [None]
  - SUICIDAL IDEATION [None]
  - SUICIDE ATTEMPT [None]
  - VOMITING [None]
